FAERS Safety Report 4413420-6 (Version None)
Quarter: 2004Q2

REPORT INFORMATION
  Report Type: 
  Country: None (occurrence: None)
  Receive Date: 20040630
  Receipt Date: 20040303
  Transmission Date: 20050107
  Serious: Yes (Hospitalization)
  Sender: FDA-Public Use
  Company Number: 04P-163-0252101-00

PATIENT
  Age: 50 Year
  Sex: Female
  Weight: 104.3273 kg

DRUGS (6)
  1. HUMIRA [Suspect]
     Indication: RHEUMATOID ARTHRITIS
     Dosage: 40 MG, 1 IN 1 WK, SUBCUTANEOUS; SEE IMAGE
     Route: 058
     Dates: start: 20030601, end: 20030801
  2. HUMIRA [Suspect]
     Indication: RHEUMATOID ARTHRITIS
     Dosage: 40 MG, 1 IN 1 WK, SUBCUTANEOUS; SEE IMAGE
     Route: 058
     Dates: start: 20030801, end: 20040119
  3. PREDNISONE TAB [Concomitant]
  4. ROFECOXIB [Concomitant]
  5. MINOCYCLINE HCL [Concomitant]
  6. VICODIN [Concomitant]

REACTIONS (2)
  - ARTHRALGIA [None]
  - CONDITION AGGRAVATED [None]
